FAERS Safety Report 25775157 (Version 1)
Quarter: 2025Q3

REPORT INFORMATION
  Report Type: Report from Study
  Country: US (occurrence: US)
  Receive Date: 20250909
  Receipt Date: 20250909
  Transmission Date: 20251020
  Serious: Yes (Other)
  Sender: ABBVIE
  Company Number: US-ABBVIE-6448545

PATIENT
  Age: 58 Year
  Sex: Female

DRUGS (1)
  1. RINVOQ [Suspect]
     Active Substance: UPADACITINIB
     Indication: Rheumatoid arthritis
     Route: 048
     Dates: start: 20250505

REACTIONS (4)
  - Knee arthroplasty [Recovering/Resolving]
  - Increased tendency to bruise [Recovering/Resolving]
  - Thrombosis [Recovering/Resolving]
  - Synovial cyst [Unknown]

NARRATIVE: CASE EVENT DATE: 20250101
